FAERS Safety Report 9626633 (Version 5)
Quarter: 2014Q2

REPORT INFORMATION
  Report Type: Report from Study
  Country: US (occurrence: US)
  Receive Date: 20131016
  Receipt Date: 20140530
  Transmission Date: 20141212
  Serious: Yes (Hospitalization)
  Sender: FDA-Public Use
  Company Number: US-ROCHE-1285833

PATIENT
  Age: 59 Year
  Sex: Male
  Weight: 116.4 kg

DRUGS (18)
  1. VISMODEGIB [Suspect]
     Indication: PANCREATIC CARCINOMA METASTATIC
     Dosage: LAST DOSE PRIOR TO PNEUMONITIS: 03/OCT/2013
     Route: 048
     Dates: start: 20130808, end: 20131003
  2. GEMCITABINE [Suspect]
     Indication: PANCREATIC CARCINOMA METASTATIC
     Dosage: DAYS 1, 8 AND 15 AS PER PROTOCOL
     Route: 065
     Dates: start: 20130712
  3. NAB-PACLITAXEL [Suspect]
     Indication: PANCREATIC CARCINOMA METASTATIC
     Dosage: DAYS 1, 8 AND 15 AS PER PROTOCOL
     Route: 065
     Dates: start: 20130712
  4. ENOXAPARIN [Concomitant]
     Indication: THROMBOSIS
     Route: 058
  5. AMBIEN CR [Concomitant]
     Indication: INSOMNIA
     Dosage: AT BEDTIME, AS NEEDED
     Route: 048
  6. VITAMIN C [Concomitant]
     Indication: NUTRITIONAL SUPPLEMENTATION
     Route: 048
  7. BENADRYL (UNITED STATES) [Concomitant]
     Indication: INSOMNIA
     Dosage: AT BEDTIME
     Route: 048
  8. ATIVAN [Concomitant]
     Indication: ANXIETY
     Dosage: AS NEEDED
     Route: 048
  9. ATIVAN [Concomitant]
     Indication: NAUSEA
  10. COMPAZINE [Concomitant]
     Indication: NAUSEA
     Dosage: AS NEEDED
     Route: 048
  11. TRAMADOL [Concomitant]
     Indication: PAIN
     Dosage: AS NEEDED
     Route: 048
  12. ULTIMATE FLORA [Concomitant]
     Indication: NUTRITIONAL SUPPLEMENTATION
     Dosage: DOSE: 15 BIL CAP, 1-2 DAILY
     Route: 048
  13. IBUPROFEN [Concomitant]
     Indication: ARTHRITIS
     Dosage: DAILY
     Route: 048
  14. ZANTAC [Concomitant]
     Indication: GASTROOESOPHAGEAL REFLUX DISEASE
     Route: 048
  15. LORAZEPAM [Concomitant]
     Indication: ANXIETY
     Dosage: EVERY 8 HOURS
     Route: 048
  16. TYLENOL [Concomitant]
     Indication: BACK PAIN
     Route: 048
  17. OXYCODONE [Concomitant]
     Indication: BACK PAIN
     Dosage: EVERY 4 HOURS
     Route: 048
  18. ZOMETA [Concomitant]
     Indication: OSTEOPOROSIS
     Route: 042

REACTIONS (1)
  - Pneumonitis [Recovered/Resolved]
